FAERS Safety Report 9921784 (Version 2)
Quarter: 2014Q1

REPORT INFORMATION
  Report Type: Spontaneous
  Country: US (occurrence: US)
  Receive Date: 20140225
  Receipt Date: 20140225
  Transmission Date: 20141002
  Serious: No
  Sender: FDA-Public Use
  Company Number: US-009507513-1402USA009803

PATIENT
  Age: 29 Year
  Sex: 0

DRUGS (1)
  1. NUVARING [Suspect]
     Dosage: UNK
     Dates: start: 2012

REACTIONS (1)
  - Inappropriate schedule of drug administration [Unknown]
